FAERS Safety Report 23352095 (Version 1)
Quarter: 2023Q4

REPORT INFORMATION
  Report Type: Spontaneous
  Country: US (occurrence: None)
  Receive Date: 20231227
  Receipt Date: 20231227
  Transmission Date: 20240110
  Serious: Yes (Hospitalization)
  Sender: FDA-Public Use
  Company Number: None

PATIENT
  Age: 64 Year
  Sex: Female
  Weight: 73.8 kg

DRUGS (8)
  1. HERBALS [Suspect]
     Active Substance: HERBALS
     Indication: Arthralgia
     Dosage: OTHER STRENGTH : 1;?OTHER QUANTITY : 1 PATCH(ES);?FREQUENCY : AS NEEDED;?
     Route: 062
     Dates: start: 20231021, end: 20231021
  2. Lamotrigne [Concomitant]
  3. ATORVASTATIN [Concomitant]
     Active Substance: ATORVASTATIN
  4. TELMISARTAN [Concomitant]
     Active Substance: TELMISARTAN
  5. PROBIOTICS NOS [Concomitant]
     Active Substance: PROBIOTICS NOS
  6. CALCIUM\MAGNESIUM [Concomitant]
     Active Substance: CALCIUM\MAGNESIUM
  7. VITAMIN D3 [Concomitant]
     Active Substance: CHOLECALCIFEROL
  8. VITAMIN C [Concomitant]
     Active Substance: ASCORBIC ACID

REACTIONS (6)
  - Application site pain [None]
  - Seizure [None]
  - Upper limb fracture [None]
  - Product formulation issue [None]
  - Contraindicated product administered [None]
  - Herbal interaction [None]

NARRATIVE: CASE EVENT DATE: 20231021
